FAERS Safety Report 7332938-X (Version None)
Quarter: 2011Q1

REPORT INFORMATION
  Report Type: 
  Country: None (occurrence: None)
  Receive Date: 20110304
  Receipt Date: 20110301
  Transmission Date: 20110831
  Serious: Yes (Death, Other)
  Sender: FDA-Public Use
  Company Number: PHHY2011PL14055

PATIENT
  Sex: Female
  Weight: 65 kg

DRUGS (11)
  1. VOLTAREN SR 100 [Suspect]
     Indication: ANGINA PECTORIS
     Dosage: 100 MG, UNK
     Route: 048
     Dates: end: 20100714
  2. PIASCLEDINE [Concomitant]
  3. FUROSEMIDE [Concomitant]
  4. AULIN [Suspect]
     Indication: OSTEOARTHRITIS
     Dosage: 200 MG, UNK
     Route: 048
     Dates: end: 20100714
  5. MYDOCALM [Concomitant]
  6. ALENDRONIC ACID [Concomitant]
  7. KETONAL FORTE [Suspect]
     Indication: ESSENTIAL HYPERTENSION
     Dosage: 300 MG, UNK
     Route: 048
     Dates: end: 20100714
  8. RAMIPRIL [Concomitant]
  9. DIGOXIN [Concomitant]
  10. KALIPOZ [Concomitant]
  11. ZALDIAR [Concomitant]

REACTIONS (2)
  - GASTROINTESTINAL HAEMORRHAGE [None]
  - DEATH [None]
